FAERS Safety Report 17223267 (Version 4)
Quarter: 2020Q1

REPORT INFORMATION
  Report Type: Report from Study
  Country: PL (occurrence: PL)
  Receive Date: 20200102
  Receipt Date: 20200305
  Transmission Date: 20200409
  Serious: Yes (Hospitalization)
  Sender: FDA-Public Use
  Company Number: PL-ZPPROD-ZP19PL000072

PATIENT

DRUGS (6)
  1. POLOCARD [Concomitant]
     Active Substance: ASPIRIN
     Indication: ANGINA PECTORIS
     Dosage: 75 MILLIGRAM
     Route: 048
     Dates: start: 2015
  2. TULIP                              /01326102/ [Concomitant]
     Active Substance: ATORVASTATIN CALCIUM
     Indication: ANGINA PECTORIS
     Dosage: 10 MILLIGRAM
     Route: 048
     Dates: start: 2015
  3. BIOTROPIL [Concomitant]
     Indication: PROPHYLAXIS
     Dosage: 800 MILLIGRAM
     Route: 048
     Dates: start: 2015
  4. EMANERA [Concomitant]
     Active Substance: ESOMEPRAZOLE MAGNESIUM
     Indication: SHORT-BOWEL SYNDROME
     Dosage: 20 MILLIGRAM
     Route: 048
     Dates: start: 2015
  5. GLEPAGLUTIDE - OW [Suspect]
     Active Substance: GLEPAGLUTIDE
     Indication: SHORT-BOWEL SYNDROME
     Dosage: GLEPAGLUTIDE 10 MG ONCE WEEKLY
     Route: 058
     Dates: start: 20191002, end: 20191219
  6. LOPERAMID [Concomitant]
     Active Substance: LOPERAMIDE
     Indication: SHORT-BOWEL SYNDROME
     Dosage: 2 MILLIGRAM, TID
     Route: 048
     Dates: start: 2015

REACTIONS (1)
  - Cholecystitis [Recovering/Resolving]

NARRATIVE: CASE EVENT DATE: 20191219
